FAERS Safety Report 8647769 (Version 2)
Quarter: 2013Q1

REPORT INFORMATION
  Report Type: Spontaneous
  Country: BR (occurrence: BR)
  Receive Date: 20120703
  Receipt Date: 20130125
  Transmission Date: 20140127
  Serious: Yes (Other)
  Sender: FDA-Public Use
  Company Number: PHHY2012BR055956

PATIENT
  Sex: Male

DRUGS (11)
  1. TRILEPTAL [Suspect]
     Indication: CONVULSION
     Dosage: 2 DF(300 MG), DAILY
     Route: 048
     Dates: start: 201205
  2. TRILEPTAL [Suspect]
     Dosage: 1 DF (300 MH), DAILY
     Route: 048
  3. TRILEPTAL [Suspect]
     Dosage: 2 DF(300 MG), DAILY
     Route: 048
  4. TRILEPTAL [Suspect]
     Dosage: 2 DF (600 MG) DAILY
     Route: 048
     Dates: start: 201211
  5. NPH INSULIN [Concomitant]
     Indication: DIABETES MELLITUS
     Dosage: 45 IU, 2 TIMES A DAY
     Route: 058
     Dates: start: 201009
  6. REGULAR INSULIN [Concomitant]
     Indication: DIABETES MELLITUS
     Dosage: 8 IU, 2 TIMES A DAY
     Route: 058
     Dates: start: 201009
  7. GLIFAGE [Concomitant]
     Indication: DIABETES MELLITUS
     Dosage: 500 MG,3 TABLETS A DAY
     Route: 048
     Dates: start: 201009
  8. RIVOTRIL [Concomitant]
     Indication: EMOTIONAL DISORDER
     Dosage: 2 MG,DAILY
     Route: 048
  9. AAS [Concomitant]
     Indication: CARDIAC DISORDER
     Dosage: 100 MG,DAILY
     Route: 048
     Dates: start: 201205
  10. LOSARTAN [Concomitant]
     Indication: BLOOD PRESSURE
     Dosage: 50 MG, 2 TABLETS DAILY
     Route: 048
     Dates: start: 201009
  11. SIMVASTATIN [Concomitant]
     Dosage: 50 MG, DAILY
     Route: 048

REACTIONS (9)
  - Cardiomegaly [Not Recovered/Not Resolved]
  - Petit mal epilepsy [Recovered/Resolved]
  - Liver disorder [Recovering/Resolving]
  - Cardiac disorder [Recovering/Resolving]
  - Head discomfort [Recovering/Resolving]
  - Emotional disorder [Not Recovered/Not Resolved]
  - Convulsion [Recovering/Resolving]
  - Amnesia [Not Recovered/Not Resolved]
  - Blood glucose increased [Not Recovered/Not Resolved]
